FAERS Safety Report 25893220 (Version 1)
Quarter: 2025Q4

REPORT INFORMATION
  Report Type: Spontaneous
  Country: US (occurrence: US)
  Receive Date: 20251008
  Receipt Date: 20251008
  Transmission Date: 20260118
  Serious: No
  Sender: NOVITIUM PHARMA
  Company Number: US-NOVITIUM PHARMA-000061

PATIENT
  Sex: Female

DRUGS (1)
  1. FLUOXETINE [Suspect]
     Active Substance: FLUOXETINE HYDROCHLORIDE
     Indication: Product used for unknown indication
     Dosage: 20 MG/5 ML
     Route: 048

REACTIONS (4)
  - Oral discomfort [Unknown]
  - Dyspepsia [Unknown]
  - Heart rate irregular [Unknown]
  - Product substitution issue [Unknown]
